FAERS Safety Report 5071356-4 (Version None)
Quarter: 2006Q3

REPORT INFORMATION
  Report Type: 
  Country: None (occurrence: None)
  Receive Date: 20060804
  Receipt Date: 20060725
  Transmission Date: 20061208
  Serious: Yes (Other)
  Sender: FDA-Public Use
  Company Number: BR-ROCHE-457155

PATIENT
  Age: 18 Year
  Sex: Male
  Weight: 85 kg

DRUGS (2)
  1. ROACUTAN [Suspect]
     Indication: ACNE
     Route: 048
     Dates: start: 20060715
  2. UNSPECIFIED MEDICATION [Concomitant]
     Dates: start: 20060710

REACTIONS (6)
  - DRY MOUTH [None]
  - DRY SKIN [None]
  - ERYTHEMA [None]
  - HAEMATEMESIS [None]
  - HAEMORRHAGE [None]
  - SALIVARY GLAND DISORDER [None]
